FAERS Safety Report 9542165 (Version 1)
Quarter: 2013Q3

REPORT INFORMATION
  Report Type: Spontaneous
  Country: US (occurrence: None)
  Receive Date: 20130919
  Receipt Date: 20130919
  Transmission Date: 20140515
  Serious: Yes (Life-Threatening, Disabling)
  Sender: FDA-Public Use
  Company Number: None

PATIENT
  Age: 44 Year
  Sex: Female
  Weight: 108.86 kg

DRUGS (1)
  1. QSYMIA [Suspect]
     Indication: WEIGHT CONTROL
     Dates: start: 20130328, end: 20130519

REACTIONS (10)
  - Mood swings [None]
  - Depression [None]
  - Suicidal ideation [None]
  - Amnesia [None]
  - Aggression [None]
  - Aggression [None]
  - Social avoidant behaviour [None]
  - Drug effect decreased [None]
  - Quality of life decreased [None]
  - Impaired work ability [None]
